FAERS Safety Report 11808894 (Version 1)
Quarter: 2015Q4

REPORT INFORMATION
  Report Type: Spontaneous
  Country: US (occurrence: US)
  Receive Date: 20151207
  Receipt Date: 20151207
  Transmission Date: 20160305
  Serious: No
  Sender: FDA-Public Use
  Company Number: US-ROCHE-1460805

PATIENT
  Sex: Female

DRUGS (1)
  1. LUCENTIS [Suspect]
     Active Substance: RANIBIZUMAB
     Indication: RETINAL VEIN OCCLUSION
     Route: 031

REACTIONS (6)
  - Unevaluable event [Unknown]
  - Generalised erythema [Unknown]
  - Eye pain [Unknown]
  - Eyelid disorder [Unknown]
  - Eye disorder [Unknown]
  - Nausea [Unknown]
